FAERS Safety Report 6003141-0 (Version None)
Quarter: 2008Q4

REPORT INFORMATION
  Report Type: 
  Country: None (occurrence: None)
  Receive Date: 20081216
  Receipt Date: 20081210
  Transmission Date: 20090506
  Serious: Yes (Hospitalization)
  Sender: FDA-Public Use
  Company Number: DE-WYE-G02752008

PATIENT
  Age: 47 Year
  Sex: Male

DRUGS (2)
  1. LORAZEPAM [Suspect]
     Route: 048
  2. VENLAFAXINE HCL [Suspect]
     Dosage: HIGHEST DOSE
     Route: 048

REACTIONS (2)
  - DRUG INEFFECTIVE [None]
  - NONSPECIFIC REACTION [None]
